FAERS Safety Report 16447078 (Version 3)
Quarter: 2020Q1

REPORT INFORMATION
  Report Type: Report from Study
  Country: CA (occurrence: CA)
  Receive Date: 20190618
  Receipt Date: 20200102
  Transmission Date: 20200409
  Serious: Yes (Hospitalization, Other)
  Sender: FDA-Public Use
  Company Number: CA-TAKEDA-2017TUS023292

PATIENT
  Age: 55 Year
  Sex: Male

DRUGS (7)
  1. VEDOLIZUMAB [Suspect]
     Active Substance: VEDOLIZUMAB
     Dosage: 300 MILLIGRAM, Q4WEEKS
     Route: 042
     Dates: start: 20171201
  2. VEDOLIZUMAB [Suspect]
     Active Substance: VEDOLIZUMAB
     Indication: COLITIS ULCERATIVE
     Dosage: 300 MILLIGRAM
     Route: 042
     Dates: start: 20170609
  3. VEDOLIZUMAB [Suspect]
     Active Substance: VEDOLIZUMAB
     Dosage: 300 MILLIGRAM, Q4WEEKS
     Route: 042
  4. VITAMIN D NOS [Concomitant]
     Active Substance: VITAMIN D NOS
     Dosage: 25 MICROGRAM, QD
     Route: 048
  5. PREDNISONE. [Concomitant]
     Active Substance: PREDNISONE
     Indication: COLITIS ULCERATIVE
     Dosage: UNK
     Dates: start: 20160525
  6. VEDOLIZUMAB [Suspect]
     Active Substance: VEDOLIZUMAB
     Dosage: 300 MILLIGRAM
     Route: 042
  7. CALCIUM [Concomitant]
     Active Substance: CALCIUM
     Dosage: 500 MILLIGRAM, QD
     Route: 048

REACTIONS (7)
  - Intestinal mass [Unknown]
  - Weight decreased [Unknown]
  - Fatigue [Unknown]
  - Rectal prolapse [Unknown]
  - Faecal calprotectin increased [Not Recovered/Not Resolved]
  - Colitis ulcerative [Unknown]
  - Off label use [Unknown]

NARRATIVE: CASE EVENT DATE: 201710
